FAERS Safety Report 5392750-8 (Version None)
Quarter: 2007Q3

REPORT INFORMATION
  Report Type: 
  Country: None (occurrence: None)
  Receive Date: 20070720
  Receipt Date: 20070710
  Transmission Date: 20080115
  Serious: Yes (Death, Hospitalization)
  Sender: FDA-Public Use
  Company Number: US-PFIZER INC-2007026958

PATIENT
  Sex: Male
  Weight: 77.5 kg

DRUGS (5)
  1. SUTENT [Suspect]
     Indication: HEPATIC NEOPLASM MALIGNANT
     Route: 048
     Dates: start: 20070404, end: 20070404
  2. METOPROLOL TARTRATE [Concomitant]
     Indication: BLOOD PRESSURE
     Route: 048
  3. SPIRONOLACTONE [Concomitant]
     Indication: BLOOD PRESSURE
     Route: 048
  4. OXYCODONE HCL [Concomitant]
     Indication: PAIN
     Route: 048
  5. GLUCOVANCE [Concomitant]
     Indication: DIABETES MELLITUS
     Dosage: TEXT:5/500MG-FREQ:1-2 DAILY
     Route: 048

REACTIONS (2)
  - DISEASE PROGRESSION [None]
  - HEPATIC NEOPLASM MALIGNANT [None]
